FAERS Safety Report 20835480 (Version 3)
Quarter: 2024Q1

REPORT INFORMATION
  Report Type: Spontaneous
  Country: US (occurrence: US)
  Receive Date: 20220516
  Receipt Date: 20240207
  Transmission Date: 20240410
  Serious: No
  Sender: FDA-Public Use
  Company Number: US-SA-SAC20220512000572

PATIENT
  Age: 80 Year
  Sex: Female

DRUGS (6)
  1. DUPIXENT [Suspect]
     Active Substance: DUPILUMAB
     Indication: Dermatitis atopic
     Dosage: 300 MG, QM
     Route: 058
     Dates: start: 202102
  2. DUPIXENT [Suspect]
     Active Substance: DUPILUMAB
     Dosage: 300 MG, Q3W
     Route: 058
  3. DUPIXENT [Suspect]
     Active Substance: DUPILUMAB
     Dosage: 300 MG, Q4W
     Route: 058
  4. DUPIXENT [Suspect]
     Active Substance: DUPILUMAB
     Dosage: 1 DF, Q3M
     Route: 058
  5. DUPIXENT [Suspect]
     Active Substance: DUPILUMAB
     Dosage: 300 EVERY 3-4 MONTHS
     Route: 058
  6. DUPIXENT [Suspect]
     Active Substance: DUPILUMAB
     Dosage: 300 EVERY EVERY 1-2 MONTH
     Route: 058

REACTIONS (3)
  - Incorrect dose administered [Unknown]
  - Product prescribing issue [Unknown]
  - Inappropriate schedule of product administration [Unknown]
